FAERS Safety Report 4918027-X (Version None)
Quarter: 2006Q1

REPORT INFORMATION
  Report Type: 
  Country: None (occurrence: None)
  Receive Date: 20060221
  Receipt Date: 20050930
  Transmission Date: 20060701
  Serious: Yes (Hospitalization)
  Sender: FDA-Public Use
  Company Number: US-MERCK-0510USA01947

PATIENT
  Age: 82 Year
  Sex: Female
  Weight: 77 kg

DRUGS (14)
  1. SYNTHROID [Concomitant]
     Route: 065
  2. TRIAMTERENE [Concomitant]
     Route: 065
  3. MAXZIDE [Concomitant]
     Route: 065
  4. ASPIRIN [Concomitant]
     Route: 065
  5. ISOSORBIDE [Concomitant]
     Route: 065
  6. LIPITOR [Concomitant]
     Route: 065
  7. PLAVIX [Concomitant]
     Route: 065
  8. ESTROPIPATE [Concomitant]
     Route: 065
  9. EVISTA [Concomitant]
     Route: 065
  10. VIOXX [Suspect]
     Indication: ARTHRITIS
     Route: 048
     Dates: start: 20020220, end: 20040701
  11. ACTONEL [Concomitant]
     Route: 065
  12. CLARITIN [Concomitant]
     Route: 065
  13. DETROL LA [Concomitant]
     Route: 065
  14. FLONASE [Concomitant]
     Route: 065

REACTIONS (5)
  - ATRIOVENTRICULAR BLOCK FIRST DEGREE [None]
  - CEREBROVASCULAR ACCIDENT [None]
  - SINUS BRADYCARDIA [None]
  - SINUSITIS [None]
  - TRANSIENT ISCHAEMIC ATTACK [None]
